FAERS Safety Report 21242769 (Version 2)
Quarter: 2024Q3

REPORT INFORMATION
  Report Type: Report from Study
  Country: CA (occurrence: None)
  Receive Date: 20220823
  Receipt Date: 20240923
  Transmission Date: 20241016
  Serious: Yes (Other)
  Sender: ORION
  Company Number: CA-Orion Corporation ORION PHARMA-TREX2019-5627

PATIENT
  Age: 36 Year
  Sex: Female

DRUGS (19)
  1. METHOTREXATE [Suspect]
     Active Substance: METHOTREXATE
     Indication: Product used for unknown indication
  2. METHOTREXATE [Suspect]
     Active Substance: METHOTREXATE
  3. METHOTREXATE [Suspect]
     Active Substance: METHOTREXATE
  4. COSENTYX [Suspect]
     Active Substance: SECUKINUMAB
     Indication: Ankylosing spondylitis
  5. COSENTYX [Suspect]
     Active Substance: SECUKINUMAB
  6. COSENTYX [Suspect]
     Active Substance: SECUKINUMAB
  7. COSENTYX [Suspect]
     Active Substance: SECUKINUMAB
  8. COSENTYX [Suspect]
     Active Substance: SECUKINUMAB
  9. COSENTYX [Suspect]
     Active Substance: SECUKINUMAB
  10. COSENTYX [Suspect]
     Active Substance: SECUKINUMAB
  11. COSENTYX [Suspect]
     Active Substance: SECUKINUMAB
  12. COSENTYX [Suspect]
     Active Substance: SECUKINUMAB
  13. DICLOFENAC [Suspect]
     Active Substance: DICLOFENAC
     Indication: Product used for unknown indication
  14. DICLOFENAC [Suspect]
     Active Substance: DICLOFENAC
     Dosage: 2 EVERY 1 DAYS
  15. DICLOFENAC [Suspect]
     Active Substance: DICLOFENAC
  16. CELEBREX [Concomitant]
     Active Substance: CELECOXIB
  17. CELEBREX [Concomitant]
     Active Substance: CELECOXIB
  18. HUMIRA [Concomitant]
     Active Substance: ADALIMUMAB
  19. SIMPONI [Concomitant]
     Active Substance: GOLIMUMAB

REACTIONS (17)
  - Drug ineffective [Unknown]
  - Chest pain [Unknown]
  - Fatigue [Unknown]
  - Headache [Unknown]
  - Nasopharyngitis [Unknown]
  - Nausea [Unknown]
  - Pigmentation disorder [Unknown]
  - Arthralgia [Unknown]
  - Dermatitis allergic [Unknown]
  - Dysstasia [Unknown]
  - Gait disturbance [Unknown]
  - Joint range of motion decreased [Unknown]
  - Joint swelling [Unknown]
  - Musculoskeletal stiffness [Unknown]
  - Weight bearing difficulty [Unknown]
  - Ankylosing spondylitis [Unknown]
  - Off label use [Unknown]
